FAERS Safety Report 11196919 (Version 1)
Quarter: 2015Q2

REPORT INFORMATION
  Report Type: Report from Study
  Country: RO (occurrence: RO)
  Receive Date: 20150617
  Receipt Date: 20150617
  Transmission Date: 20150821
  Serious: Yes (Life-Threatening, Hospitalization, Other)
  Sender: FDA-Public Use
  Company Number: RO-ABBVIE-12P-135-0955665-00

PATIENT
  Age: 58 Year
  Sex: Male
  Weight: 55 kg

DRUGS (3)
  1. DUODOPA [Suspect]
     Active Substance: CARBIDOPA\LEVODOPA
     Indication: PARKINSON^S DISEASE
     Dosage: ROUTE: PEG
     Route: 050
     Dates: start: 20120703
  2. DIAPRO [Concomitant]
     Indication: DIABETES MELLITUS
     Route: 048
     Dates: start: 20090125
  3. COAXIL [Concomitant]
     Indication: DEPRESSION
     Route: 048
     Dates: start: 20120703

REACTIONS (3)
  - Peritonitis [Recovered/Resolved]
  - Pneumoperitoneum [Recovered/Resolved]
  - Depression [Unknown]

NARRATIVE: CASE EVENT DATE: 20120704
